FAERS Safety Report 7907973-0 (Version None)
Quarter: 2011Q4

REPORT INFORMATION
  Report Type: 
  Country: None (occurrence: None)
  Receive Date: 20111110
  Receipt Date: 20111109
  Transmission Date: 20120403
  Serious: Yes (Hospitalization, Other)
  Sender: FDA-Public Use
  Company Number: US-MERCK-1102USA02273

PATIENT
  Age: 52 Year
  Sex: Female

DRUGS (3)
  1. FOSAMAX [Suspect]
     Indication: OSTEOPOROSIS
     Route: 048
     Dates: start: 19960101, end: 20090101
  2. RECLAST [Concomitant]
     Indication: OSTEOPOROSIS
     Route: 065
     Dates: start: 20090101
  3. FOSAMAX PLUS D [Suspect]
     Route: 048

REACTIONS (2)
  - FEMUR FRACTURE [None]
  - BREAST CANCER [None]
